FAERS Safety Report 4784971-X (Version None)
Quarter: 2005Q3

REPORT INFORMATION
  Report Type: 
  Country: None (occurrence: None)
  Receive Date: 20050930
  Receipt Date: 20050926
  Transmission Date: 20060218
  Serious: Yes (Hospitalization, Other)
  Sender: FDA-Public Use
  Company Number: PHBS2005HR14116

PATIENT
  Age: 34 Year
  Sex: Male
  Weight: 70 kg

DRUGS (3)
  1. SANDIMMUNE [Suspect]
     Indication: APLASTIC ANAEMIA
     Dosage: 100 MG, BID
     Route: 048
     Dates: start: 20050705, end: 20050715
  2. MEDROL [Concomitant]
     Dosage: 32 MG, BID
  3. PEPTORAN [Concomitant]
     Dosage: 150 MG, BID

REACTIONS (2)
  - APHTHOUS STOMATITIS [None]
  - LEUKOPENIA [None]
